FAERS Safety Report 25770468 (Version 2)
Quarter: 2025Q3

REPORT INFORMATION
  Report Type: Spontaneous
  Country: US (occurrence: US)
  Receive Date: 20250908
  Receipt Date: 20250919
  Transmission Date: 20251021
  Serious: No
  Sender: Haleon PLC
  Company Number: US-HALEON-2260877

PATIENT
  Age: 93 Year
  Sex: Female

DRUGS (1)
  1. GAS-X MAXIMUM STRENGTH SOFTGELS [Suspect]
     Active Substance: DIMETHICONE
     Indication: Flatulence
     Dates: start: 20250831

REACTIONS (1)
  - Drug ineffective [Unknown]
